FAERS Safety Report 21627877 (Version 1)
Quarter: 2022Q4

REPORT INFORMATION
  Report Type: Spontaneous
  Country: US (occurrence: US)
  Receive Date: 20221122
  Receipt Date: 20221122
  Transmission Date: 20230113
  Serious: No
  Sender: FDA-Public Use
  Company Number: US-ALVOGEN-2022-ALVOGEN-119154

PATIENT
  Age: 37 Year
  Sex: Female

DRUGS (1)
  1. FLUOXETINE HYDROCHLORIDE [Suspect]
     Active Substance: FLUOXETINE HYDROCHLORIDE
     Indication: Depression
     Dates: start: 20220201

REACTIONS (6)
  - Muscular weakness [Unknown]
  - Pain [Unknown]
  - Decreased appetite [Unknown]
  - Depression [Unknown]
  - Anxiety [Unknown]
  - Hot flush [Unknown]

NARRATIVE: CASE EVENT DATE: 20220201
